FAERS Safety Report 7920362-8 (Version None)
Quarter: 2011Q4

REPORT INFORMATION
  Report Type: 
  Country: None (occurrence: None)
  Receive Date: 20111117
  Receipt Date: 20111110
  Transmission Date: 20120403
  Serious: Yes (Other)
  Sender: FDA-Public Use
  Company Number: US-ABBOTT-11P-163-0873837-00

PATIENT
  Age: 65 Year
  Sex: Male

DRUGS (16)
  1. ATARAX [Concomitant]
     Indication: PSORIASIS
  2. LORATADINE [Concomitant]
     Indication: HYPERSENSITIVITY
  3. ENALAPRIL MALEATE [Concomitant]
     Indication: HEART VALVE INCOMPETENCE
     Dates: start: 20110701
  4. HUMIRA [Suspect]
     Indication: PSORIASIS
     Route: 058
     Dates: start: 20101110, end: 20110801
  5. ASPIRIN [Concomitant]
     Indication: PRODUCT USED FOR UNKNOWN INDICATION
     Route: 048
  6. CIALIS [Concomitant]
     Indication: PRODUCT USED FOR UNKNOWN INDICATION
  7. WARFARIN SODIUM [Concomitant]
     Indication: PRODUCT USED FOR UNKNOWN INDICATION
     Dosage: 5MG 5 DAYS, 7.5 MG M AND F
  8. KLOR-CON [Concomitant]
     Indication: PRODUCT USED FOR UNKNOWN INDICATION
  9. PRILOSEC [Concomitant]
     Indication: GASTROOESOPHAGEAL REFLUX DISEASE
  10. POTASSIUM CITRATE [Concomitant]
     Indication: PRODUCT USED FOR UNKNOWN INDICATION
  11. TOPROL-XL [Concomitant]
     Indication: ATRIAL FIBRILLATION
  12. LASIX [Concomitant]
     Indication: PRODUCT USED FOR UNKNOWN INDICATION
  13. SIMVASTATIN [Concomitant]
     Indication: BLOOD CHOLESTEROL INCREASED
  14. ATARAX [Concomitant]
     Indication: PRURITUS
     Dosage: AT BEDTIME
  15. DIPROLENE [Concomitant]
     Indication: PSORIASIS
  16. ENALAPRIL MALEATE [Concomitant]
     Indication: CARDIAC DISORDER

REACTIONS (6)
  - ARTHRITIS [None]
  - CARDIAC FAILURE [None]
  - THERAPY REGIMEN CHANGED [None]
  - SKIN CANCER [None]
  - SYSTEMIC LUPUS ERYTHEMATOSUS [None]
  - SKIN LESION [None]
